FAERS Safety Report 4881091-0 (Version None)
Quarter: 2005Q4

REPORT INFORMATION
  Report Type: 
  Country: None (occurrence: None)
  Receive Date: 20051223
  Receipt Date: 20050920
  Transmission Date: 20060501
  Serious: No
  Sender: FDA-Public Use
  Company Number: 05P-163-0311526-00

PATIENT
  Age: 66 Year
  Sex: Female
  Weight: 63.5036 kg

DRUGS (8)
  1. HUMIRA [Suspect]
     Indication: RHEUMATOID ARTHRITIS
     Dosage: 40 MG, 1 IN 2 WK, SUBCUTANEOUS
     Route: 058
     Dates: start: 20040101
  2. MELOXICAM [Concomitant]
  3. ACETYLSALICYLIC ACID SRT [Concomitant]
  4. IBUPROFEN [Concomitant]
  5. METHOTREXATE SODIUM [Concomitant]
  6. FOLIC ACID [Concomitant]
  7. ERGOCALCIFEROL [Concomitant]
  8. ALENDRONATE SODIUM [Concomitant]

REACTIONS (2)
  - COUGH [None]
  - NASAL CONGESTION [None]
